FAERS Safety Report 7007893-2 (Version None)
Quarter: 2010Q3

REPORT INFORMATION
  Report Type: 
  Country: None (occurrence: None)
  Receive Date: 20100922
  Receipt Date: 20100811
  Transmission Date: 20110219
  Serious: Yes (Death, Hospitalization, Other)
  Sender: FDA-Public Use
  Company Number: US-BAXTER-2009BH015468

PATIENT
  Age: 62 Year
  Sex: Male

DRUGS (9)
  1. HEPARIN SODIUM INJECTION [Suspect]
     Indication: ISCHAEMIC CARDIOMYOPATHY
     Route: 065
     Dates: start: 20071201
  2. HEPARIN SODIUM INJECTION [Suspect]
     Indication: HEART TRANSPLANT
     Route: 065
     Dates: start: 20071201
  3. HEPARIN SODIUM INJECTION [Suspect]
     Indication: THROMBOSIS
     Route: 065
     Dates: start: 20071201
  4. HEPARIN SODIUM INJECTION [Suspect]
     Route: 042
     Dates: start: 20071212, end: 20071212
  5. HEPARIN SODIUM INJECTION [Suspect]
     Route: 042
     Dates: start: 20071212, end: 20071212
  6. HEPARIN SODIUM INJECTION [Suspect]
     Route: 042
     Dates: start: 20071212, end: 20071212
  7. HEPARIN SODIUM 5,000 UNITS IN DEXTROSE 5% [Suspect]
     Indication: THROMBOSIS
     Route: 042
     Dates: start: 20071212, end: 20071201
  8. LASIX [Concomitant]
     Indication: PRODUCT USED FOR UNKNOWN INDICATION
     Route: 042
  9. DOPAMINE HCL [Concomitant]
     Indication: PRODUCT USED FOR UNKNOWN INDICATION
     Route: 042

REACTIONS (17)
  - ACIDOSIS [None]
  - AORTIC THROMBOSIS [None]
  - ATRIOVENTRICULAR BLOCK [None]
  - CARDIAC ARREST [None]
  - CARDIAC FAILURE CONGESTIVE [None]
  - CARDIOGENIC SHOCK [None]
  - CAROTID ARTERY OCCLUSION [None]
  - HAEMODYNAMIC INSTABILITY [None]
  - HAEMORRHAGE [None]
  - HYPOGLYCAEMIA [None]
  - HYPOTENSION [None]
  - HYPOTHERMIA [None]
  - INTESTINAL ISCHAEMIA [None]
  - MULTI-ORGAN FAILURE [None]
  - MUSCULOSKELETAL CHEST PAIN [None]
  - PROCEDURAL COMPLICATION [None]
  - RENAL FAILURE ACUTE [None]
